FAERS Safety Report 18635760 (Version 2)
Quarter: 2021Q1

REPORT INFORMATION
  Report Type: Spontaneous
  Country: SA (occurrence: SA)
  Receive Date: 20201218
  Receipt Date: 20210108
  Transmission Date: 20210419
  Serious: Yes (Death, Other)
  Sender: FDA-Public Use
  Company Number: SA-BAYER-2020-269775

PATIENT
  Age: 58 Year
  Sex: Female

DRUGS (3)
  1. FOLFIRI CETUXIMAB [Concomitant]
     Dosage: X 3 CYCLE
  2. STIVARGA [Suspect]
     Active Substance: REGORAFENIB
     Indication: COLON CANCER METASTATIC
     Dosage: 80 MG, QD X2 WKS
     Dates: start: 201706
  3. STIVARGA [Suspect]
     Active Substance: REGORAFENIB
     Indication: COLON CANCER METASTATIC
     Dosage: 120 MG, QD X1WK

REACTIONS (11)
  - Fatigue [Recovering/Resolving]
  - Tumour rupture [None]
  - Metastases to liver [None]
  - Metastases to abdominal cavity [None]
  - Palmar-plantar erythrodysaesthesia syndrome [Recovering/Resolving]
  - Skin discharge [None]
  - Off label use [None]
  - Metastases to lung [None]
  - Colorectal cancer metastatic [None]
  - Dysphonia [Recovering/Resolving]
  - Death [Fatal]

NARRATIVE: CASE EVENT DATE: 201706
